FAERS Safety Report 4482267-7 (Version None)
Quarter: 2004Q4

REPORT INFORMATION
  Report Type: 
  Country: None (occurrence: None)
  Receive Date: 20041022
  Receipt Date: 20040927
  Transmission Date: 20050328
  Serious: Yes (Hospitalization)
  Sender: FDA-Public Use
  Company Number: 200413019JP

PATIENT
  Age: 54 Year
  Sex: Male

DRUGS (3)
  1. KETEK [Suspect]
     Indication: PNEUMONIA
     Route: 048
     Dates: start: 20040921, end: 20040921
  2. VOLTAREN [Suspect]
     Indication: PYREXIA
     Route: 048
     Dates: start: 20040921, end: 20040921
  3. KOLANTYL GEL [Suspect]
     Indication: PYREXIA
     Route: 048
     Dates: start: 20040921, end: 20040921

REACTIONS (4)
  - BACTERIAL INFECTION [None]
  - EOSINOPHILIC PNEUMONIA ACUTE [None]
  - HYPOXIA [None]
  - SMEAR SITE UNSPECIFIED ABNORMAL [None]
